FAERS Safety Report 8185008-5 (Version None)
Quarter: 2012Q1

REPORT INFORMATION
  Report Type: 
  Country: None (occurrence: None)
  Receive Date: 20120305
  Receipt Date: 20120223
  Transmission Date: 20120608
  Serious: Yes (Death)
  Sender: FDA-Public Use
  Company Number: JP-JNJFOC-20120212536

PATIENT
  Age: 6 Decade
  Sex: Male

DRUGS (2)
  1. STEROIDS NOS [Concomitant]
  2. STELARA [Suspect]
     Indication: PSORIASIS
     Route: 058
     Dates: start: 20120217, end: 20120217

REACTIONS (1)
  - COMPLETED SUICIDE [None]
